FAERS Safety Report 19251862 (Version 2)
Quarter: 2021Q2

REPORT INFORMATION
  Report Type: Spontaneous
  Country: US (occurrence: US)
  Receive Date: 20210513
  Receipt Date: 20210525
  Transmission Date: 20210717
  Serious: No
  Sender: FDA-Public Use
  Company Number: US-LUPIN PHARMACEUTICALS INC.-2021-06550

PATIENT
  Age: 29 Year
  Sex: Female

DRUGS (1)
  1. LEVETIRACETAM. [Suspect]
     Active Substance: LEVETIRACETAM
     Indication: EPILEPSY
     Dosage: 500 MILLIGRAM, QID, 2 TABS IN THE MORNING, 2 TABS IN THE EVENING
     Route: 048
     Dates: start: 2021

REACTIONS (8)
  - Product dispensing error [Unknown]
  - Nausea [Unknown]
  - Wrong product administered [Unknown]
  - Headache [Unknown]
  - Vomiting [Unknown]
  - Product commingling [Unknown]
  - Dizziness [Unknown]
  - Loss of personal independence in daily activities [Unknown]

NARRATIVE: CASE EVENT DATE: 20210428
